FAERS Safety Report 9700288 (Version 1)
Quarter: 2013Q4

REPORT INFORMATION
  Report Type: Spontaneous
  Country: CN (occurrence: CN)
  Receive Date: 20131121
  Receipt Date: 20131121
  Transmission Date: 20140711
  Serious: Yes (Other)
  Sender: FDA-Public Use
  Company Number: CN-BAYER-2013-139202

PATIENT
  Age: 51 Year
  Sex: Male
  Weight: 68 kg

DRUGS (1)
  1. NIMOTOP [Suspect]
     Indication: HEADACHE
     Dosage: 30 MG, TID
     Route: 048
     Dates: start: 20121102, end: 20121104

REACTIONS (1)
  - Gastrointestinal haemorrhage [Recovered/Resolved]
